FAERS Safety Report 11004695 (Version 1)
Quarter: 2015Q2

REPORT INFORMATION
  Report Type: Report from Study
  Country: US (occurrence: US)
  Receive Date: 20150409
  Receipt Date: 20150409
  Transmission Date: 20150821
  Serious: Yes (Death, Other)
  Sender: FDA-Public Use
  Company Number: US-BAYER-2014-022776

PATIENT
  Age: 78 Year
  Sex: Male
  Weight: 122.49 kg

DRUGS (5)
  1. STIVARGA [Suspect]
     Active Substance: REGORAFENIB
     Indication: COLON CANCER METASTATIC
     Dosage: 160 MG, QD
     Route: 048
     Dates: start: 20131212
  2. STIVARGA [Suspect]
     Active Substance: REGORAFENIB
     Indication: COLON CANCER METASTATIC
     Dosage: 120 MG, QD
     Route: 048
     Dates: start: 20131219
  3. STIVARGA [Suspect]
     Active Substance: REGORAFENIB
     Indication: COLON CANCER METASTATIC
     Dosage: 160 MG, QD
     Route: 048
  4. STIVARGA [Suspect]
     Active Substance: REGORAFENIB
     Indication: COLON CANCER METASTATIC
     Dosage: 120 MG, QD
     Route: 048
  5. STIVARGA [Suspect]
     Active Substance: REGORAFENIB
     Indication: COLON CANCER METASTATIC
     Dosage: 80 MG, QD
     Route: 048

REACTIONS (13)
  - Blindness [Recovered/Resolved]
  - Oropharyngeal pain [None]
  - Colon cancer metastatic [Fatal]
  - Dysphonia [None]
  - Fatigue [None]
  - Hypoaesthesia [None]
  - Lacrimation increased [Recovered/Resolved]
  - Constipation [Recovered/Resolved]
  - Cough [None]
  - Dyspnoea [None]
  - Constipation [None]
  - Oedema peripheral [Recovering/Resolving]
  - Pain in extremity [None]
